FAERS Safety Report 4791589-1 (Version None)
Quarter: 2005Q4

REPORT INFORMATION
  Report Type: 
  Country: None (occurrence: None)
  Receive Date: 20051007
  Receipt Date: 20050422
  Transmission Date: 20060501
  Serious: No
  Sender: FDA-Public Use
  Company Number: US-BRISTOL-MYERS SQUIBB COMPANY-12943494

PATIENT
  Sex: Female

DRUGS (3)
  1. AVAPRO [Suspect]
     Indication: BLOOD PRESSURE INCREASED
     Dates: start: 20050406, end: 20050413
  2. VYTORIN [Concomitant]
     Dates: start: 20050406, end: 20050413
  3. VITAMIN SUPPLEMENT [Concomitant]

REACTIONS (2)
  - ABDOMINAL PAIN UPPER [None]
  - DIZZINESS [None]
